FAERS Safety Report 9742240 (Version 1)
Quarter: 2013Q4

REPORT INFORMATION
  Report Type: Spontaneous
  Country: GB (occurrence: GB)
  Receive Date: 20131210
  Receipt Date: 20131210
  Transmission Date: 20140711
  Serious: Yes (Other)
  Sender: FDA-Public Use
  Company Number: CHNY2013GB002798

PATIENT
  Age: 38 Year
  Sex: Female

DRUGS (1)
  1. TRANSDERM SCOP [Suspect]
     Indication: PROCEDURAL NAUSEA
     Dosage: 1 DF, Q72H
     Route: 062
     Dates: start: 20131028, end: 20131128

REACTIONS (13)
  - Deafness [Unknown]
  - Hypoaesthesia [Recovering/Resolving]
  - VIIth nerve paralysis [Recovering/Resolving]
  - Disorientation [Unknown]
  - Balance disorder [Unknown]
  - Vision blurred [Not Recovered/Not Resolved]
  - Pain [Recovering/Resolving]
  - Application site pruritus [Not Recovered/Not Resolved]
  - Application site swelling [Not Recovered/Not Resolved]
  - Application site erythema [Not Recovered/Not Resolved]
  - Dry mouth [Not Recovered/Not Resolved]
  - Nausea [Unknown]
  - Dizziness [Unknown]
